FAERS Safety Report 5902808-X (Version None)
Quarter: 2008Q3

REPORT INFORMATION
  Report Type: 
  Country: None (occurrence: None)
  Receive Date: 20080930
  Receipt Date: 20080919
  Transmission Date: 20090109
  Serious: Yes (Death, Other)
  Sender: FDA-Public Use
  Company Number: GB-JNJFOC-20080904987

PATIENT
  Age: 77 Year
  Sex: Female
  Weight: 82 kg

DRUGS (8)
  1. REMICADE [Suspect]
     Indication: RHEUMATOID ARTHRITIS
     Route: 042
  2. AMILORIDE HYDROCHLORIDE [Concomitant]
  3. DICLOFENAC [Concomitant]
  4. ESOMEPRAZOLE MAGNESIUM [Concomitant]
  5. FRUSEMIDE [Concomitant]
  6. LACIDIPINE [Concomitant]
  7. PREDNEOLONE [Concomitant]
  8. TIBOLONE [Concomitant]

REACTIONS (2)
  - DEATH [None]
  - LUNG NEOPLASM MALIGNANT [None]
